FAERS Safety Report 25614080 (Version 1)
Quarter: 2025Q3

REPORT INFORMATION
  Report Type: Spontaneous
  Country: EU (occurrence: EU)
  Receive Date: 20250728
  Receipt Date: 20250728
  Transmission Date: 20251021
  Serious: Yes (Other)
  Sender: BOEHRINGER INGELHEIM
  Company Number: None

PATIENT
  Age: 58 Year
  Sex: Male
  Weight: 98 kg

DRUGS (4)
  1. IPRATROPIUM BROMIDE [Suspect]
     Active Substance: IPRATROPIUM BROMIDE
     Indication: Product used for unknown indication
     Dosage: THERAPY ONGOING
     Dates: start: 2018
  2. SINGULAIR [Concomitant]
     Active Substance: MONTELUKAST SODIUM
     Indication: Asthma
     Dosage: THERAPY ONGOING
     Dates: start: 2015
  3. Asaris (500 ?G + 50 ?G)/DAWK? INHALACYJN? [Concomitant]
     Indication: Asthma
  4. LORATADINE [Concomitant]
     Active Substance: LORATADINE
     Indication: Asthma
     Dosage: THERAPY ONGOING
     Dates: start: 2015

REACTIONS (4)
  - Bronchial irritation [Recovering/Resolving]
  - Product quality issue [Unknown]
  - Cough [Recovering/Resolving]
  - Laryngeal pain [Recovering/Resolving]

NARRATIVE: CASE EVENT DATE: 20210901
